FAERS Safety Report 5611044-6 (Version None)
Quarter: 2008Q1

REPORT INFORMATION
  Report Type: 
  Country: None (occurrence: None)
  Receive Date: 20080201
  Receipt Date: 20080128
  Transmission Date: 20080703
  Serious: Yes (Other)
  Sender: FDA-Public Use
  Company Number: US-ASTRAZENECA-2007AC01409

PATIENT
  Age: 18 Year
  Sex: Male

DRUGS (4)
  1. QUETIAPINE FUMARATE [Suspect]
     Indication: HALLUCINATION, AUDITORY
  2. QUETIAPINE FUMARATE [Suspect]
  3. QUETIAPINE FUMARATE [Suspect]
     Dosage: DOSE TAPERED THEN STOPPED
  4. DEXTROAMPETAMINE SULFATE TAB [Concomitant]
     Indication: CENTRAL NERVOUS SYSTEM STIMULATION
     Dosage: DOSE TAPERED THEN STOPPED

REACTIONS (2)
  - AGGRESSION [None]
  - SOMNAMBULISM [None]
